FAERS Safety Report 26059716 (Version 1)
Quarter: 2025Q4

REPORT INFORMATION
  Report Type: 
  Country: US (occurrence: US)
  Receive Date: 20251118
  Receipt Date: 20251118
  Transmission Date: 20260118
  Serious: Yes (Hospitalization, Other)
  Sender: CB FLEET
  Company Number: US-PRESTIGE-202511-US-003643

PATIENT
  Age: 15 Year
  Sex: Female

DRUGS (1)
  1. DIPHENHYDRAMINE HYDROCHLORIDE [Suspect]
     Active Substance: DIPHENHYDRAMINE HYDROCHLORIDE
     Indication: Product used for unknown indication
     Dosage: 250 TABLETS

REACTIONS (5)
  - Anticholinergic syndrome [Recovered/Resolved]
  - Mydriasis [Recovered/Resolved]
  - Mucosal dryness [Recovered/Resolved]
  - Agitation [Recovered/Resolved]
  - Intentional overdose [None]
